FAERS Safety Report 7507161-6 (Version None)
Quarter: 2011Q2

REPORT INFORMATION
  Report Type: 
  Country: None (occurrence: None)
  Receive Date: 20110526
  Receipt Date: 20101109
  Transmission Date: 20111010
  Serious: Yes (Hospitalization, Other)
  Sender: FDA-Public Use
  Company Number: US-BAYER-201041706NA

PATIENT
  Age: 66 Year
  Sex: Female
  Weight: 85 kg

DRUGS (12)
  1. ARTHROTEC [Concomitant]
     Dosage: 75/200 ONE TABLET
     Route: 048
  2. NITROGLYCERIN [Concomitant]
     Route: 042
  3. SODIUM BICARBONATE [Concomitant]
     Dosage: 150 MEQ
     Route: 042
     Dates: start: 20040604, end: 20040604
  4. RED BLOOD CELLS [Concomitant]
     Dosage: 2 U, UNK
     Route: 042
     Dates: start: 20040604
  5. LIPITOR [Concomitant]
     Dosage: 20 MG AT NIGHT
     Route: 048
  6. HEPARIN [Concomitant]
     Dosage: 30000 UNITS
     Route: 042
     Dates: start: 20040604, end: 20040604
  7. TRASYLOL [Suspect]
     Indication: AORTIC VALVE REPLACEMENT
     Dosage: 200 CC
     Route: 042
     Dates: start: 20040604, end: 20040604
  8. TRASYLOL [Suspect]
     Indication: CORONARY ARTERY BYPASS
  9. LOTENSIN [Concomitant]
     Dosage: 10 MG, QD
     Route: 048
  10. DOPAMINE HCL [Concomitant]
     Dosage: UNK
     Route: 042
     Dates: start: 20040602
  11. TRASYLOL [Suspect]
     Indication: COX-MAZE PROCEDURE
  12. ALBUMIN [ALBUMEN] [Concomitant]
     Dosage: 50 CC
     Route: 042
     Dates: start: 20040604, end: 20040604

REACTIONS (9)
  - INJURY [None]
  - EMOTIONAL DISTRESS [None]
  - UNEVALUABLE EVENT [None]
  - STRESS [None]
  - ANXIETY [None]
  - RENAL FAILURE [None]
  - FEAR [None]
  - RENAL FAILURE ACUTE [None]
  - PAIN [None]
